FAERS Safety Report 14369285 (Version 2)
Quarter: 2024Q1

REPORT INFORMATION
  Report Type: Spontaneous
  Country: US (occurrence: US)
  Receive Date: 20180109
  Receipt Date: 20240220
  Transmission Date: 20240410
  Serious: No
  Sender: FDA-Public Use
  Company Number: US-BIOGEN-2018BI00506174

PATIENT
  Sex: Female

DRUGS (2)
  1. TYSABRI [Suspect]
     Active Substance: NATALIZUMAB
     Indication: Multiple sclerosis
     Route: 050
     Dates: start: 20161013
  2. TYSABRI [Suspect]
     Active Substance: NATALIZUMAB
     Route: 050

REACTIONS (5)
  - Inappropriate schedule of product administration [Unknown]
  - Blood pressure decreased [Unknown]
  - Multiple sclerosis relapse [Unknown]
  - Heart rate abnormal [Unknown]
  - Gait disturbance [Not Recovered/Not Resolved]
